FAERS Safety Report 12192944 (Version 1)
Quarter: 2016Q1

REPORT INFORMATION
  Report Type: Report from Study
  Country: BG (occurrence: BG)
  Receive Date: 20160318
  Receipt Date: 20160318
  Transmission Date: 20160526
  Serious: Yes (Hospitalization)
  Sender: FDA-Public Use
  Company Number: BG-KADMON PHARMACEUTICALS, LLC-KAD201602-000410

PATIENT
  Age: 66 Year
  Sex: Male

DRUGS (9)
  1. DASABUVIR [Suspect]
     Active Substance: DASABUVIR
     Indication: HEPATITIS C
     Dosage: TABLET
     Route: 048
     Dates: start: 20151210
  2. SPIRONOLACTON [Concomitant]
     Active Substance: SPIRONOLACTONE
  3. NEBILET [Concomitant]
     Active Substance: NEBIVOLOL
     Indication: HYPERTENSION
  4. CAVINTON [Concomitant]
     Active Substance: VINPOCETINE
  5. L-THYROXINE [Concomitant]
     Active Substance: LEVOTHYROXINE
     Indication: HYPERTHYROIDISM
  6. OMBITASVIR/PARITAPREVIR/RITONAVIR [Suspect]
     Active Substance: OMBITASVIR\PARITAPREVIR\RITONAVIR
     Indication: HEPATITIS C
     Dosage: TABLET
     Route: 048
     Dates: start: 20151210
  7. MILURIT [Concomitant]
     Active Substance: ALLOPURINOL
     Indication: GOUT
  8. RIBAVIRIN 200 MG TABLETS [Suspect]
     Active Substance: RIBAVIRIN
     Indication: HEPATITIS C
     Route: 048
     Dates: start: 20151210
  9. METFORMIN [Concomitant]
     Active Substance: METFORMIN HYDROCHLORIDE

REACTIONS (8)
  - Blood thyroid stimulating hormone decreased [Unknown]
  - Alanine aminotransferase increased [Unknown]
  - Blood creatinine increased [Recovered/Resolved]
  - Hyperthyroidism [Unknown]
  - Blood potassium increased [Recovered/Resolved]
  - Weight decreased [Unknown]
  - Tubulointerstitial nephritis [Recovered/Resolved]
  - Asthenia [Recovering/Resolving]

NARRATIVE: CASE EVENT DATE: 20160122
